FAERS Safety Report 5335248-5 (Version None)
Quarter: 2007Q2

REPORT INFORMATION
  Report Type: 
  Country: None (occurrence: None)
  Receive Date: 20070525
  Receipt Date: 20070205
  Transmission Date: 20071010
  Serious: Yes (Hospitalization, Other)
  Sender: FDA-Public Use
  Company Number: US-PFIZER INC-2007009363

PATIENT
  Age: 101 Year
  Sex: Female

DRUGS (1)
  1. LYRICA [Suspect]
     Indication: HERPES ZOSTER

REACTIONS (6)
  - ABASIA [None]
  - DYSKINESIA [None]
  - HYPOKINESIA [None]
  - PAIN [None]
  - SEDATION [None]
  - TREMOR [None]
